FAERS Safety Report 8259205-4 (Version None)
Quarter: 2012Q2

REPORT INFORMATION
  Report Type: 
  Country: None (occurrence: None)
  Receive Date: 20120404
  Receipt Date: 20120329
  Transmission Date: 20120825
  Serious: Yes (Death, Hospitalization, Other)
  Sender: FDA-Public Use
  Company Number: FR-PFIZER INC-2012064113

PATIENT
  Age: 60 Year
  Sex: Female

DRUGS (5)
  1. IDARUBICIN HCL [Suspect]
     Indication: ACUTE MYELOID LEUKAEMIA
     Dosage: TOTAL DOSE: 64.44 MG (12.0 MG/M2), ON DAYS 1-3
     Route: 042
     Dates: start: 20120126, end: 20120128
  2. CYTARABINE [Suspect]
     Dosage: UNK
     Route: 037
  3. METHOTREXATE [Concomitant]
     Indication: ACUTE MYELOID LEUKAEMIA
     Dosage: UNK
     Route: 037
  4. CYTARABINE [Suspect]
     Indication: ACUTE MYELOID LEUKAEMIA
     Dosage: TOTAL DOSE: 2506 MG (200.0 MG/M2), ON DAYS 1-7
     Route: 042
     Dates: start: 20120126, end: 20120201
  5. DEPO-MEDROL [Concomitant]
     Indication: ACUTE MYELOID LEUKAEMIA
     Dosage: UNK
     Route: 037

REACTIONS (9)
  - APLASIA [None]
  - HAEMORRHAGE [None]
  - ACUTE RESPIRATORY DISTRESS SYNDROME [None]
  - RENAL FAILURE [None]
  - ENTEROCOCCAL BACTERAEMIA [None]
  - GASTROINTESTINAL NECROSIS [None]
  - INTESTINAL ISCHAEMIA [None]
  - SEPTIC SHOCK [None]
  - CELLULITIS [None]
